FAERS Safety Report 6860853-4 (Version None)
Quarter: 2010Q3

REPORT INFORMATION
  Report Type: 
  Country: None (occurrence: None)
  Receive Date: 20100719
  Receipt Date: 20100719
  Transmission Date: 20110219
  Serious: Yes (Other)
  Sender: FDA-Public Use
  Company Number: None

PATIENT
  Sex: Female
  Weight: 61.2356 kg

DRUGS (1)
  1. ADVAIR HFA [Suspect]
     Indication: ASTHMA
     Dosage: 2 PUFFS ONCE/DAY INHAL
     Route: 055
     Dates: start: 20080926, end: 20100705

REACTIONS (9)
  - ASTHMA [None]
  - CHEST DISCOMFORT [None]
  - CONDITION AGGRAVATED [None]
  - DYSPNOEA [None]
  - IDIOSYNCRATIC DRUG REACTION [None]
  - PALPITATIONS [None]
  - RESTLESSNESS [None]
  - TREMOR [None]
  - WHEEZING [None]
